FAERS Safety Report 7080917-2 (Version None)
Quarter: 2010Q4

REPORT INFORMATION
  Report Type: 
  Country: None (occurrence: None)
  Receive Date: 20101103
  Receipt Date: 20101025
  Transmission Date: 20110411
  Serious: Yes (Hospitalization)
  Sender: FDA-Public Use
  Company Number: FR-ASTRAZENECA-2010SE50421

PATIENT
  Age: 25019 Day
  Sex: Male

DRUGS (6)
  1. NEXIUM [Suspect]
     Route: 048
  2. MUPHORAN [Suspect]
     Indication: MALIGNANT MELANOMA
     Route: 042
     Dates: start: 20090701, end: 20100701
  3. LEXOMIL ROCHE [Suspect]
     Route: 048
  4. LYRICA [Suspect]
     Route: 048
     Dates: end: 20100810
  5. IXPRIM [Suspect]
     Route: 048
  6. MOTILIUM [Suspect]
     Route: 048

REACTIONS (1)
  - LEUKOENCEPHALOPATHY [None]
